FAERS Safety Report 7437253-1 (Version None)
Quarter: 2011Q2

REPORT INFORMATION
  Report Type: 
  Country: None (occurrence: None)
  Receive Date: 20110426
  Receipt Date: 20110420
  Transmission Date: 20111010
  Serious: Yes (Hospitalization)
  Sender: FDA-Public Use
  Company Number: CH-BRISTOL-MYERS SQUIBB COMPANY-15507361

PATIENT
  Age: 66 Year
  Sex: Male
  Weight: 64 kg

DRUGS (17)
  1. ERBITUX [Suspect]
     Indication: LARYNGEAL CANCER
     Dosage: NO: OF INF-4
     Route: 042
     Dates: start: 20101103, end: 20101203
  2. CISPLATIN [Concomitant]
     Indication: HYPOPHARYNGEAL CANCER
  3. CORDARONE [Concomitant]
     Dosage: ENTERAL
  4. ERBITUX [Suspect]
     Indication: HYPOPHARYNGEAL CANCER
     Dosage: NO: OF INF-4
     Route: 042
     Dates: start: 20101103, end: 20101203
  5. NEXIUM [Concomitant]
     Dosage: ENTERAL
  6. FRAGMIN [Concomitant]
     Route: 058
  7. NOVASOURCE [Concomitant]
     Dosage: 1 DF = 500ML,120ML/H 1500ML OVER 12H,NOVASOURCE GI FORTE,ENTERAL
  8. PERENTEROL [Concomitant]
     Dosage: ENTERAL
  9. TAXOTERE [Concomitant]
     Indication: LARYNGEAL CANCER
  10. DIPIPERON [Concomitant]
     Dosage: PEG
  11. REMERON [Concomitant]
     Dosage: ENTERAL
  12. ZESTRIL [Concomitant]
     Dosage: 0.5/DAY,ENTERAL
  13. CISPLATIN [Concomitant]
     Indication: LARYNGEAL CANCER
  14. ALDACTONE [Concomitant]
     Route: 042
     Dates: start: 20110120
  15. ELTROXIN [Concomitant]
  16. TAXOTERE [Concomitant]
     Indication: HYPOPHARYNGEAL CANCER
  17. CONCOR [Concomitant]
     Dosage: ENTERAL

REACTIONS (6)
  - GENERAL PHYSICAL HEALTH DETERIORATION [None]
  - STEVENS-JOHNSON SYNDROME [None]
  - PAIN [None]
  - DYSPHAGIA [None]
  - PNEUMONIA ASPIRATION [None]
  - MUCOSAL INFLAMMATION [None]
